FAERS Safety Report 16676313 (Version 4)
Quarter: 2019Q4

REPORT INFORMATION
  Report Type: Report from Study
  Country: MX (occurrence: MX)
  Receive Date: 20190807
  Receipt Date: 20191206
  Transmission Date: 20200122
  Serious: Yes (Other)
  Sender: FDA-Public Use
  Company Number: MX-ROCHE-2369806

PATIENT
  Age: 62 Year
  Sex: Male
  Weight: 83 kg

DRUGS (11)
  1. METFORMIN [Concomitant]
     Active Substance: METFORMIN HYDROCHLORIDE
     Indication: DIABETES MELLITUS
     Dosage: 2 DF, 1 DF IN THE MORNING AND 1 DF IN THE AFTERNOON
     Route: 065
  2. JANUVIA [Concomitant]
     Active Substance: SITAGLIPTIN PHOSPHATE
     Indication: DIABETES MELLITUS
     Dosage: 1 DF, QD (2 YEARS AGO)
     Route: 048
  3. LUCENTIS [Suspect]
     Active Substance: RANIBIZUMAB
     Indication: RETINAL OEDEMA
     Route: 031
     Dates: start: 2019
  4. LUCENTIS [Suspect]
     Active Substance: RANIBIZUMAB
     Route: 031
     Dates: start: 20190920
  5. LUCENTIS [Suspect]
     Active Substance: RANIBIZUMAB
     Route: 065
  6. LUCENTIS [Suspect]
     Active Substance: RANIBIZUMAB
     Dosage: BOTH EYE
     Route: 031
     Dates: start: 20180406
  7. INSULIN [Concomitant]
     Active Substance: INSULIN NOS
     Indication: DIABETES MELLITUS
     Dosage: 15 UI IN THE MORNING AND 15 UI IN THE AFTERNOON
     Route: 058
  8. LUCENTIS [Suspect]
     Active Substance: RANIBIZUMAB
     Dosage: LEFT EYE
     Route: 031
     Dates: start: 20181116
  9. LUCENTIS [Suspect]
     Active Substance: RANIBIZUMAB
     Dosage: LEFT EYE
     Route: 031
     Dates: start: 20190201
  10. LOSARTAN. [Concomitant]
     Active Substance: LOSARTAN
     Indication: HYPERTENSION
     Dosage: 1 DF IN THE MORNING AND 1 DF IN THE AFTERNOON
     Route: 048
  11. NEOMYCIN SULFATE;POLYMYXIN B SULFATE [Concomitant]
     Indication: PRODUCT USED FOR UNKNOWN INDICATION
     Dosage: 1 GTT IN RIGHT EYE, Q12H
     Route: 047
     Dates: start: 20190726

REACTIONS (9)
  - Cataract [Unknown]
  - Retinal detachment [Unknown]
  - Vision blurred [Not Recovered/Not Resolved]
  - Eye inflammation [Recovered/Resolved]
  - Macular oedema [Unknown]
  - Product use in unapproved indication [Unknown]
  - Lacrimation increased [Not Recovered/Not Resolved]
  - Off label use [Unknown]
  - Visual impairment [Unknown]

NARRATIVE: CASE EVENT DATE: 20190726
